FAERS Safety Report 10230116 (Version 1)
Quarter: 2014Q2

REPORT INFORMATION
  Report Type: Spontaneous
  Country: US (occurrence: US)
  Receive Date: 20140611
  Receipt Date: 20140611
  Transmission Date: 20141212
  Serious: No
  Sender: FDA-Public Use
  Company Number: US-PFIZER INC-2014156308

PATIENT
  Sex: Female

DRUGS (11)
  1. GEODON [Suspect]
     Dosage: UNK
  2. DOXEPIN [Suspect]
     Dosage: UNK
  3. ABILIFY [Suspect]
     Dosage: UNK
  4. AMITRIPTYLINE [Suspect]
     Dosage: UNK
  5. ATIVAN [Suspect]
     Dosage: UNK
  6. CODEINE [Suspect]
     Dosage: UNK
  7. COMPAZINE [Suspect]
     Dosage: UNK
  8. DEPAKOTE [Suspect]
     Dosage: UNK
  9. DEPLIN [Suspect]
     Dosage: UNK
  10. CARBAMAZEPINE [Suspect]
     Dosage: UNK
  11. HALDOL [Suspect]
     Dosage: UNK

REACTIONS (1)
  - Drug hypersensitivity [Unknown]
